FAERS Safety Report 25281342 (Version 1)
Quarter: 2025Q2

REPORT INFORMATION
  Report Type: Spontaneous
  Country: US (occurrence: US)
  Receive Date: 20250508
  Receipt Date: 20250508
  Transmission Date: 20250717
  Serious: No
  Sender: HETERO
  Company Number: US-HETERO-HET2025US02157

PATIENT
  Sex: Female

DRUGS (1)
  1. LINEZOLID [Suspect]
     Active Substance: LINEZOLID
     Indication: Product used for unknown indication
     Route: 065

REACTIONS (5)
  - Decreased appetite [Unknown]
  - Asthenia [Unknown]
  - Anosmia [Unknown]
  - Nausea [Unknown]
  - Vomiting [Unknown]
